FAERS Safety Report 4795035-3 (Version None)
Quarter: 2005Q4

REPORT INFORMATION
  Report Type: 
  Country: None (occurrence: None)
  Receive Date: 20051006
  Receipt Date: 20050923
  Transmission Date: 20060501
  Serious: Yes (Hospitalization, Other)
  Sender: FDA-Public Use
  Company Number: 2005056854

PATIENT
  Age: 53 Year
  Sex: Male
  Weight: 108.8633 kg

DRUGS (10)
  1. CELEBREX [Suspect]
     Indication: ILL-DEFINED DISORDER
     Dosage: (100 MG,), ORAL
     Route: 048
  2. BENZONATATE [Suspect]
     Indication: ILL-DEFINED DISORDER
     Dosage: (100 MG,)
     Dates: start: 20050328
  3. OMNICEF [Suspect]
     Indication: ILL-DEFINED DISORDER
     Dosage: (300 MG,)
     Dates: start: 20050328
  4. ALLEGRA-D 12 HOUR [Suspect]
     Indication: ILL-DEFINED DISORDER
     Dates: start: 20050328
  5. FLONASE [Suspect]
     Indication: ILL-DEFINED DISORDER
     Dates: start: 20050328
  6. ALL OTHER THERAPEUTIC PRODUCTS (ALL OTHER THERAPEUTIC PRODUCTS) [Suspect]
     Indication: ILL-DEFINED DISORDER
  7. HYDROCHLOROTHIAZIDE/OLMESARTAN (HYDROCHLOROTHIAZIDE, OLMESARTAN) [Concomitant]
  8. SIMVASTATIN [Concomitant]
  9. AMOXICILLIN [Concomitant]
  10. TUSSIN DM (DEXTROMETHORPHAN HYDROBROMIDE, GUAIFENESIN) [Concomitant]

REACTIONS (11)
  - ARTERIAL OCCLUSIVE DISEASE [None]
  - BLINDNESS [None]
  - BLOOD CHOLESTEROL INCREASED [None]
  - BLOOD PRESSURE INCREASED [None]
  - CEREBRAL ISCHAEMIA [None]
  - CEREBROVASCULAR ACCIDENT [None]
  - CHRONIC SINUSITIS [None]
  - HEADACHE [None]
  - LOCKED-IN SYNDROME [None]
  - NECK PAIN [None]
  - WEIGHT INCREASED [None]
